FAERS Safety Report 4279112-1 (Version None)
Quarter: 2004Q1

REPORT INFORMATION
  Report Type: 
  Country: None (occurrence: None)
  Receive Date: 20040122
  Receipt Date: 20040106
  Transmission Date: 20041129
  Serious: Yes (Hospitalization)
  Sender: FDA-Public Use
  Company Number: 189968

PATIENT
  Age: 56 Year
  Sex: Female
  Weight: 61.2356 kg

DRUGS (7)
  1. AVONEX [Suspect]
     Indication: MULTIPLE SCLEROSIS
     Dosage: 30 MCG QW IM
     Route: 030
     Dates: start: 20020801, end: 20030901
  2. AVONEX [Suspect]
     Indication: MULTIPLE SCLEROSIS
     Dosage: 30 MCG QW IM
     Route: 030
     Dates: start: 20030901
  3. LORAZEPAM [Concomitant]
  4. ATENOLOL [Concomitant]
  5. DITROPAN [Concomitant]
  6. CHLORTHALIDONE [Concomitant]
  7. TIZANIDINE HCL [Concomitant]

REACTIONS (6)
  - BLOOD POTASSIUM DECREASED [None]
  - GALLBLADDER DISORDER [None]
  - OEDEMA PERIPHERAL [None]
  - SKIN DISCOLOURATION [None]
  - WEIGHT DECREASED [None]
  - WOUND [None]
